FAERS Safety Report 23404751 (Version 2)
Quarter: 2024Q1

REPORT INFORMATION
  Report Type: Spontaneous
  Country: JP (occurrence: JP)
  Receive Date: 20240116
  Receipt Date: 20240116
  Transmission Date: 20240410
  Serious: Yes (Other)
  Sender: FDA-Public Use
  Company Number: JP-MLMSERVICE-20240101-4749893-1

PATIENT
  Age: 57 Year
  Sex: Female

DRUGS (2)
  1. METHOTREXATE SODIUM [Suspect]
     Active Substance: METHOTREXATE SODIUM
     Indication: Rheumatoid arthritis
     Dosage: 8 MG, 1X/DAY
  2. PREDNISOLONE [Concomitant]
     Active Substance: PREDNISOLONE
     Indication: Rheumatoid arthritis
     Dosage: 2 MG, 1X/DAY (FOR 8 YEARS)

REACTIONS (4)
  - Epstein-Barr virus associated lymphoproliferative disorder [Recovering/Resolving]
  - Lymphoproliferative disorder [Recovering/Resolving]
  - Hepatic mass [Recovering/Resolving]
  - Pulmonary mass [Recovering/Resolving]
